FAERS Safety Report 6207492-6 (Version None)
Quarter: 2009Q2

REPORT INFORMATION
  Report Type: 
  Country: None (occurrence: None)
  Receive Date: 20090528
  Receipt Date: 20090513
  Transmission Date: 20091009
  Serious: Yes (Other)
  Sender: FDA-Public Use
  Company Number: BR-PFIZER INC-2008087534

PATIENT
  Age: 62 Year

DRUGS (2)
  1. CHAMPIX [Suspect]
     Indication: TOBACCO USER
     Route: 048
     Dates: start: 20080911, end: 20081011
  2. PANTOPRAZOLE [Concomitant]

REACTIONS (1)
  - GINGIVAL BLEEDING [None]
